FAERS Safety Report 5661556-4 (Version None)
Quarter: 2008Q1

REPORT INFORMATION
  Report Type: 
  Country: None (occurrence: None)
  Receive Date: 20080312
  Receipt Date: 20080305
  Transmission Date: 20080703
  Serious: Yes (Other)
  Sender: FDA-Public Use
  Company Number: PHEH2008US01961

PATIENT
  Age: 81 Year
  Sex: Female
  Weight: 89.433 kg

DRUGS (10)
  1. DIOVAN HCT [Suspect]
     Indication: HYPERTENSION
     Dosage: 160 MGVAL/UNK, UNK
     Route: 065
  2. DIOVAN HCT [Suspect]
     Dosage: 320MGVAL/12.5MG,HCTQD
     Route: 048
  3. DETROL [Concomitant]
     Dosage: 4 MG, QD
     Route: 048
  4. CELEBRA [Concomitant]
     Dosage: 200 MG, QD
  5. ARICEPT [Concomitant]
     Dosage: 10 MG, QD
  6. FOSAMAX [Concomitant]
     Dosage: 70 MG, QW
  7. ASPIRIN [Concomitant]
     Dosage: 81 MG, TIW
  8. CLOTRIMAZOLE [Concomitant]
     Dosage: UNK, BID
  9. TRAMADOL HCL [Concomitant]
     Dosage: 37.5 MG, PRN
  10. ACETAMINOPHEN [Concomitant]
     Dosage: 325 MG, PRN

REACTIONS (2)
  - FATIGUE [None]
  - HEART RATE DECREASED [None]
